APPROVED DRUG PRODUCT: METFORMIN HYDROCHLORIDE
Active Ingredient: METFORMIN HYDROCHLORIDE
Strength: 1GM
Dosage Form/Route: TABLET, EXTENDED RELEASE;ORAL
Application: A212681 | Product #002 | TE Code: AB3
Applicant: PRINSTON PHARMACEUTICAL INC
Approved: Jun 9, 2022 | RLD: No | RS: No | Type: RX